FAERS Safety Report 10163490 (Version 1)
Quarter: 2014Q2

REPORT INFORMATION
  Report Type: Spontaneous
  Country: US (occurrence: US)
  Receive Date: 20140509
  Receipt Date: 20140509
  Transmission Date: 20141212
  Serious: Yes (Disabling, Other)
  Sender: FDA-Public Use
  Company Number: US-ELI_LILLY_AND_COMPANY-US201405000559

PATIENT
  Age: 50 Year
  Sex: Male

DRUGS (3)
  1. HUMULIN 30% REGULAR, 70% NPH [Suspect]
     Indication: DIABETES MELLITUS
     Dosage: UNK
     Route: 065
  2. INSULIN HUMAN [Suspect]
     Indication: DIABETES MELLITUS
     Dosage: UNK
     Route: 065
  3. HUMULIN NPH [Suspect]
     Indication: DIABETES MELLITUS
     Route: 065

REACTIONS (3)
  - Depression [Unknown]
  - Bipolar disorder [Unknown]
  - Liver disorder [Unknown]
